FAERS Safety Report 19032142 (Version 2)
Quarter: 2021Q2

REPORT INFORMATION
  Report Type: Spontaneous
  Country: TR (occurrence: TR)
  Receive Date: 20210319
  Receipt Date: 20210511
  Transmission Date: 20210717
  Serious: Yes (Other)
  Sender: FDA-Public Use
  Company Number: TR-JNJFOC-20210319882

PATIENT
  Age: 29 Year
  Sex: Female

DRUGS (3)
  1. RISPERDAL [Suspect]
     Active Substance: RISPERIDONE
     Indication: SCHIZOPHRENIA
     Route: 065
     Dates: start: 2014, end: 201702
  2. RISPERDAL [Suspect]
     Active Substance: RISPERIDONE
     Route: 065
  3. FLUPENTIXOL [Suspect]
     Active Substance: FLUPENTIXOL
     Indication: SCHIZOPHRENIA
     Route: 065
     Dates: start: 2014, end: 2016

REACTIONS (8)
  - Hallucination, auditory [Unknown]
  - Myocardial necrosis marker increased [Recovered/Resolved]
  - Hallucination, visual [Unknown]
  - Abnormal behaviour [Unknown]
  - Speech disorder [Unknown]
  - Depression [Unknown]
  - Impaired self-care [Unknown]
  - Thinking abnormal [Unknown]

NARRATIVE: CASE EVENT DATE: 2017
